FAERS Safety Report 9510630 (Version 2)
Quarter: 2013Q3

REPORT INFORMATION
  Report Type: Report from Study
  Country: JP (occurrence: JP)
  Receive Date: 20130909
  Receipt Date: 20130919
  Transmission Date: 20140515
  Serious: Yes (Other)
  Sender: FDA-Public Use
  Company Number: JP-GILEAD-2013-0082874

PATIENT
  Age: 41 Year
  Sex: Male

DRUGS (10)
  1. AMBRISENTAN [Suspect]
     Indication: PULMONARY ARTERIAL HYPERTENSION
     Dosage: 5 MG, QD
     Route: 048
     Dates: start: 20120308, end: 20130411
  2. AMBRISENTAN [Suspect]
     Dosage: 7.5 UNK, UNK
     Route: 048
     Dates: start: 20120412, end: 20120516
  3. AMBRISENTAN [Suspect]
     Dosage: 5 UNK, UNK
     Route: 048
     Dates: start: 20120517
  4. ADCIRCA [Concomitant]
     Route: 048
  5. ADCIRCA [Concomitant]
     Route: 048
  6. CARELOAD [Concomitant]
     Route: 048
     Dates: start: 20120517
  7. NORVASC [Concomitant]
     Route: 048
     Dates: end: 20120208
  8. NORVASC [Concomitant]
     Route: 048
     Dates: end: 20130208
  9. WARFARIN [Concomitant]
     Indication: PROPHYLAXIS
     Route: 048
  10. WARFARIN [Concomitant]
     Route: 048

REACTIONS (2)
  - Cardiac failure [Unknown]
  - Dyspnoea [Recovering/Resolving]
